FAERS Safety Report 21143694 (Version 1)
Quarter: 2022Q3

REPORT INFORMATION
  Report Type: Spontaneous
  Country: US (occurrence: US)
  Receive Date: 20220728
  Receipt Date: 20220728
  Transmission Date: 20221027
  Serious: Yes (Hospitalization, Other)
  Sender: FDA-Public Use
  Company Number: US-TAKEDA-2022TUS050537

PATIENT
  Sex: Male

DRUGS (3)
  1. ENTYVIO [Suspect]
     Active Substance: VEDOLIZUMAB
     Indication: Inflammatory bowel disease
     Dosage: UNK UNK, Q4WEEKS
     Route: 042
  2. ENTYVIO [Suspect]
     Active Substance: VEDOLIZUMAB
     Indication: Crohn^s disease
  3. PREDNISONE [Concomitant]
     Active Substance: PREDNISONE
     Dosage: UNK

REACTIONS (10)
  - Diarrhoea [Unknown]
  - Haematochezia [Unknown]
  - Disturbance in attention [Unknown]
  - Dyspnoea [Unknown]
  - Chest discomfort [Unknown]
  - Memory impairment [Unknown]
  - Drug level decreased [Unknown]
  - Withdrawal syndrome [Unknown]
  - Loss of therapeutic response [Unknown]
  - Off label use [Unknown]
